FAERS Safety Report 17228291 (Version 1)
Quarter: 2020Q1

REPORT INFORMATION
  Report Type: Spontaneous
  Country: SE (occurrence: SE)
  Receive Date: 20200103
  Receipt Date: 20200103
  Transmission Date: 20200409
  Serious: Yes (Hospitalization)
  Sender: FDA-Public Use
  Company Number: SE-TEVA-2019-SE-1161053

PATIENT
  Age: 30 Year
  Sex: Female

DRUGS (3)
  1. DICLOFENAC [Suspect]
     Active Substance: DICLOFENAC
     Dosage: UNCLEAR AMOUNT
     Route: 065
     Dates: start: 20190404, end: 20190404
  2. ALVEDON [Suspect]
     Active Substance: ACETAMINOPHEN
     Dosage: 6 ST ? 500 MG, 3000 MG
     Dates: start: 20190404, end: 20190404
  3. PROPAVAN [Suspect]
     Active Substance: PROPIOMAZINE
     Dosage: 12 ST A 25 MG, 300 MG
     Route: 048
     Dates: start: 20190404

REACTIONS (3)
  - Intentional self-injury [Unknown]
  - Intentional overdose [Unknown]
  - Fatigue [Unknown]

NARRATIVE: CASE EVENT DATE: 20190404
